FAERS Safety Report 9688261 (Version 1)
Quarter: 2013Q4

REPORT INFORMATION
  Report Type: Spontaneous
  Country: CH (occurrence: CH)
  Receive Date: 20131114
  Receipt Date: 20131114
  Transmission Date: 20140711
  Serious: Yes (Other)
  Sender: FDA-Public Use
  Company Number: CH-BAYER-2013-135804

PATIENT
  Age: 44 Year
  Sex: Female

DRUGS (1)
  1. NEXAVAR [Suspect]
     Indication: THYROID CANCER METASTATIC

REACTIONS (5)
  - Skin toxicity [Unknown]
  - Fatigue [Unknown]
  - Weight decreased [None]
  - Decreased appetite [None]
  - Off label use [None]
